FAERS Safety Report 6597950-7 (Version None)
Quarter: 2010Q1

REPORT INFORMATION
  Report Type: 
  Country: None (occurrence: None)
  Receive Date: 20100216
  Receipt Date: 20100202
  Transmission Date: 20100710
  Serious: Yes (Other)
  Sender: FDA-Public Use
  Company Number: 1000011787

PATIENT
  Age: 30 Year
  Sex: Female

DRUGS (3)
  1. CITALOPRAM HYDROBROMIDE [Suspect]
     Indication: ANXIETY
     Dosage: 40 MG, ORAL
     Route: 048
     Dates: start: 20060101
  2. CITALOPRAM HYDROBROMIDE [Suspect]
     Indication: DEPRESSION
     Dosage: 40 MG, ORAL
     Route: 048
     Dates: start: 20060101
  3. CITALOPRAM HYDROBROMIDE [Suspect]
     Indication: DISEASE RECURRENCE
     Dosage: 40 MG, ORAL
     Route: 048
     Dates: start: 20060101

REACTIONS (1)
  - MASTITIS [None]
